FAERS Safety Report 7910652 (Version 3)
Quarter: 2013Q1

REPORT INFORMATION
  Report Type: Spontaneous
  Country: US (occurrence: US)
  Receive Date: 20110422
  Receipt Date: 20130104
  Transmission Date: 20140127
  Serious: Yes (Death, Congenital Anomaly, Other)
  Sender: FDA-Public Use
  Company Number: US-PFIZER INC-2011085470

PATIENT
  Sex: Male

DRUGS (25)
  1. ZOLOFT [Suspect]
     Indication: DEPRESSION
     Dosage: UNK
     Route: 064
     Dates: start: 1999
  2. ZOLOFT [Suspect]
     Indication: ANXIETY
     Dosage: 50 MG, UNK
     Route: 064
     Dates: start: 2001
  3. ZOLOFT [Suspect]
     Dosage: 100 MG, UNK
     Route: 064
     Dates: start: 2001
  4. ZOLOFT [Suspect]
     Dosage: 150 MG, UNK
     Route: 064
     Dates: start: 200605
  5. ZOLOFT [Suspect]
     Dosage: 125 MG, UNK
     Route: 064
     Dates: start: 200606
  6. ZOLOFT [Suspect]
     Dosage: 50 MG, 3X/DAY
     Route: 064
     Dates: start: 200705
  7. LOVENOX [Concomitant]
     Dosage: 40 MG, UNK
     Route: 064
     Dates: start: 20061026, end: 20090608
  8. ZYRTEC [Concomitant]
     Dosage: 10 MG TABLET BEFORE NOON
     Route: 064
     Dates: start: 20070413, end: 20070711
  9. SERTRALINE HYDROCHLORIDE [Concomitant]
     Dosage: 50 MG, UNK
     Route: 064
     Dates: start: 20061004
  10. PRENATAL VITAMINS [Concomitant]
     Dosage: UNK
     Route: 064
  11. ESTRACE [Concomitant]
     Dosage: 0.01 %, UNK
     Route: 064
  12. CLONAZEPAM [Concomitant]
     Dosage: 0.5 MG, UNK
     Route: 064
  13. AMPICILLIN [Concomitant]
     Dosage: 500 MG, UNK
     Route: 064
  14. ESTRING [Concomitant]
     Dosage: 2 MG, UNK
     Route: 064
  15. PRIMACARE [Concomitant]
     Dosage: ONE SOFTGEL
     Route: 064
  16. MOMETASONE FUROATE [Concomitant]
     Dosage: 0.1 %, UNK
     Route: 064
  17. PROMETHAZINE [Concomitant]
     Dosage: UNK
     Route: 064
  18. IBUPROFEN [Concomitant]
     Dosage: 800 MG, UNK
     Route: 064
  19. PROPOXY-N/APAP [Concomitant]
     Dosage: UNK
     Route: 064
  20. METHERGINE [Concomitant]
     Dosage: UNK
     Route: 064
  21. AMBIEN [Concomitant]
     Dosage: UNK
     Route: 064
  22. AZITHROMYCIN [Concomitant]
     Dosage: UNK
     Route: 064
  23. NIFEDIPINE [Concomitant]
     Dosage: 10 MG, UNK
     Route: 064
  24. TERBUTALINE [Concomitant]
     Dosage: UNK
     Route: 064
  25. HEPARIN [Concomitant]
     Dosage: UNK
     Route: 064

REACTIONS (3)
  - Foetal exposure during pregnancy [Fatal]
  - Hypoplastic left heart syndrome [Fatal]
  - Atrial septal defect [Fatal]
